FAERS Safety Report 11136535 (Version 1)
Quarter: 2015Q2

REPORT INFORMATION
  Report Type: Spontaneous
  Country: US (occurrence: US)
  Receive Date: 20150526
  Receipt Date: 20150526
  Transmission Date: 20150821
  Serious: No
  Sender: FDA-Public Use
  Company Number: US-PURDUE-USA-2015-0121250

PATIENT
  Age: 67 Year
  Sex: Male

DRUGS (3)
  1. OXYCODONE HCL IR CAPSULES [Concomitant]
     Active Substance: OXYCODONE HYDROCHLORIDE
     Indication: BREAKTHROUGH PAIN
     Dosage: 30 MG, 5/DAY
     Route: 048
  2. HYSINGLA ER [Suspect]
     Active Substance: HYDROCODONE BITARTRATE
     Dosage: 100 MG, UNK
     Route: 048
     Dates: start: 201502
  3. HYSINGLA ER [Suspect]
     Active Substance: HYDROCODONE BITARTRATE
     Indication: PAIN
     Dosage: 200 MG, DAILY
     Route: 048

REACTIONS (7)
  - Intentional product use issue [Unknown]
  - Pain [Unknown]
  - Vomiting [Unknown]
  - Feeling cold [Unknown]
  - Drug withdrawal syndrome [Unknown]
  - Drug ineffective [Unknown]
  - Tremor [Unknown]
